FAERS Safety Report 7256265-4 (Version None)
Quarter: 2011Q1

REPORT INFORMATION
  Report Type: 
  Country: None (occurrence: None)
  Receive Date: 20110129
  Receipt Date: 20100616
  Transmission Date: 20110831
  Serious: No
  Sender: FDA-Public Use
  Company Number: US-ABBOTT-10P-163-0646293-00

PATIENT
  Age: 64 Year
  Sex: Female

DRUGS (12)
  1. PLAQUENIL [Concomitant]
     Indication: ARTHRITIS
  2. PREMPRO [Concomitant]
     Indication: HORMONE REPLACEMENT THERAPY
  3. SINGULAIR [Concomitant]
     Indication: HYPERSENSITIVITY
  4. PREVACID [Concomitant]
     Indication: GASTROOESOPHAGEAL REFLUX DISEASE
  5. ALPRAZOLAM [Concomitant]
     Indication: RESTLESS LEGS SYNDROME
  6. HUMIRA [Suspect]
  7. SINGULAIR [Concomitant]
     Indication: SINUS DISORDER
  8. HYZAAR [Concomitant]
     Indication: BLOOD PRESSURE
  9. CELEXA [Concomitant]
     Indication: FIBROMYALGIA
  10. ALPRAZOLAM [Concomitant]
     Indication: FIBROMYALGIA
  11. HUMIRA [Suspect]
     Indication: RHEUMATOID ARTHRITIS
     Dates: start: 20080521
  12. CELEXA [Concomitant]
     Indication: RESTLESS LEGS SYNDROME

REACTIONS (5)
  - INJECTION SITE PAIN [None]
  - INJECTION SITE NODULE [None]
  - PAIN [None]
  - INFECTION [None]
  - INCORRECT DOSE ADMINISTERED [None]
